FAERS Safety Report 21475143 (Version 1)
Quarter: 2022Q4

REPORT INFORMATION
  Report Type: Spontaneous
  Country: GB (occurrence: GB)
  Receive Date: 20221019
  Receipt Date: 20221019
  Transmission Date: 20230113
  Serious: Yes (Hospitalization, Other)
  Sender: FDA-Public Use
  Company Number: GB-MHRA-MED-202210061528057670-LJZCT

PATIENT
  Sex: Female
  Weight: 110 kg

DRUGS (5)
  1. NAPROXEN [Suspect]
     Active Substance: NAPROXEN
     Indication: Arthritis
     Dosage: 500 MILLIGRAM, TWO TIMES A DAY
     Route: 065
     Dates: end: 20221005
  2. AMITRIPTYLINE [Concomitant]
     Active Substance: AMITRIPTYLINE
     Indication: Product used for unknown indication
     Dosage: UNK
     Route: 065
  3. COCODAMOL [Concomitant]
     Active Substance: ACETAMINOPHEN\CODEINE PHOSPHATE
     Indication: Product used for unknown indication
     Dosage: UNK
     Route: 065
  4. LANSOPRAZOLE [Concomitant]
     Active Substance: LANSOPRAZOLE
     Indication: Product used for unknown indication
     Dosage: UNK
     Route: 065
  5. SERTRALINE [Concomitant]
     Active Substance: SERTRALINE HYDROCHLORIDE
     Indication: Product used for unknown indication
     Dosage: UNK
     Route: 065

REACTIONS (1)
  - Gastric ulcer perforation [Recovering/Resolving]

NARRATIVE: CASE EVENT DATE: 20221005
